FAERS Safety Report 7340714-7 (Version None)
Quarter: 2011Q1

REPORT INFORMATION
  Report Type: 
  Country: None (occurrence: None)
  Receive Date: 20110309
  Receipt Date: 20110307
  Transmission Date: 20110831
  Serious: Yes (Death, Hospitalization)
  Sender: FDA-Public Use
  Company Number: US-B.I. PHARMACEUTICALS,INC./RIDGEFIELD-2011-BP-06946BP

PATIENT
  Age: 78 Year

DRUGS (1)
  1. PRADAXA [Suspect]
     Dates: start: 20101201

REACTIONS (1)
  - RENAL FAILURE [None]
